FAERS Safety Report 12714950 (Version 1)
Quarter: 2016Q3

REPORT INFORMATION
  Report Type: Spontaneous
  Country: US (occurrence: US)
  Receive Date: 20160905
  Receipt Date: 20160905
  Transmission Date: 20161109
  Serious: No
  Sender: FDA-Public Use
  Company Number: US-JNJFOC-20160827076

PATIENT
  Age: 66 Year
  Sex: Female
  Weight: 52.16 kg

DRUGS (11)
  1. ZANTAC [Concomitant]
     Active Substance: RANITIDINE HYDROCHLORIDE
     Indication: URTICARIA
     Dosage: START DATE: MIDDLE OF THE NIGHT EITHER 14-AUG-2016 OR 15-AUG-2016
     Route: 065
     Dates: start: 201608, end: 20160815
  2. DRAMAMINE [Concomitant]
     Active Substance: DIMENHYDRINATE
     Indication: MALAISE
     Route: 065
     Dates: start: 20160814
  3. ZYRTEC [Suspect]
     Active Substance: CETIRIZINE HYDROCHLORIDE
     Indication: URTICARIA
     Route: 048
     Dates: start: 20160817, end: 20160818
  4. ZYRTEC [Suspect]
     Active Substance: CETIRIZINE HYDROCHLORIDE
     Indication: URTICARIA
     Dosage: 1/2 TABLET
     Route: 048
     Dates: start: 20160819, end: 20160820
  5. BENADRYL [Concomitant]
     Active Substance: DIPHENHYDRAMINE HYDROCHLORIDE
     Indication: PRURITUS
     Dosage: START DATE: MIDDLE OF THE NIGHT EITHER 14-AUG-2016 OR 15-AUG-2016
     Route: 065
     Dates: start: 201608, end: 20160816
  6. ZYRTEC [Suspect]
     Active Substance: CETIRIZINE HYDROCHLORIDE
     Indication: HYPERSENSITIVITY
     Dosage: 1/2 TABLET
     Route: 048
     Dates: start: 20160819, end: 20160820
  7. BENADRYL [Concomitant]
     Active Substance: DIPHENHYDRAMINE HYDROCHLORIDE
     Indication: URTICARIA
     Dosage: START DATE: MIDDLE OF THE NIGHT EITHER 14-AUG-2016 OR 15-AUG-2016
     Route: 065
     Dates: start: 201608, end: 20160816
  8. PREDNISONE. [Concomitant]
     Active Substance: PREDNISONE
     Indication: URTICARIA
     Dosage: SHOT (1 WEEK)
     Route: 065
     Dates: start: 20160815
  9. ZYRTEC [Suspect]
     Active Substance: CETIRIZINE HYDROCHLORIDE
     Indication: HYPERSENSITIVITY
     Route: 048
     Dates: start: 20160817, end: 20160818
  10. ZANTAC [Concomitant]
     Active Substance: RANITIDINE HYDROCHLORIDE
     Indication: PRURITUS
     Dosage: START DATE: MIDDLE OF THE NIGHT EITHER 14-AUG-2016 OR 15-AUG-2016
     Route: 065
     Dates: start: 201608, end: 20160815
  11. PREDNISONE. [Concomitant]
     Active Substance: PREDNISONE
     Indication: PRURITUS
     Dosage: SHOT (1 WEEK)
     Route: 065
     Dates: start: 20160815

REACTIONS (3)
  - Product use issue [Unknown]
  - Therapeutic response unexpected [Unknown]
  - Off label use [Unknown]

NARRATIVE: CASE EVENT DATE: 20160817
